FAERS Safety Report 20215702 (Version 1)
Quarter: 2021Q4

REPORT INFORMATION
  Report Type: Spontaneous
  Country: GB (occurrence: GB)
  Receive Date: 20211222
  Receipt Date: 20211222
  Transmission Date: 20220304
  Serious: Yes (Hospitalization, Other)
  Sender: FDA-Public Use
  Company Number: GB-TEVA-2021-GB-1989501

PATIENT
  Age: 76 Year
  Sex: Male

DRUGS (5)
  1. PREDNISOLONE [Suspect]
     Active Substance: PREDNISOLONE
     Indication: Immunosuppressant drug therapy
     Dosage: 60 MILLIGRAM DAILY;
     Route: 065
  2. PREDNISOLONE [Suspect]
     Active Substance: PREDNISOLONE
     Indication: Immunosuppressant drug therapy
     Dosage: TAPERING DOSES: REDUCING BY 5 MG EVERY 5 DAYS POSTOPERATIVELY
     Route: 065
  3. FLUCLOXACILLIN [Concomitant]
     Active Substance: FLUCLOXACILLIN
     Indication: Wound infection
  4. CLINDAMYCIN [Concomitant]
     Active Substance: CLINDAMYCIN
     Indication: Wound infection
  5. IMIPENEM [Concomitant]
     Active Substance: IMIPENEM

REACTIONS (3)
  - Impaired healing [Recovered/Resolved]
  - Wound infection [Recovered/Resolved]
  - Serratia infection [Recovered/Resolved]
